FAERS Safety Report 9290364 (Version 1)
Quarter: 2013Q2

REPORT INFORMATION
  Report Type: Spontaneous
  Country: US (occurrence: None)
  Receive Date: 20130514
  Receipt Date: 20130514
  Transmission Date: 20140414
  Serious: Yes (Hospitalization)
  Sender: FDA-Public Use
  Company Number: None

PATIENT
  Age: 47 Year
  Sex: Male
  Weight: 195.05 kg

DRUGS (3)
  1. LABETALOL [Suspect]
     Indication: CARDIAC FAILURE CONGESTIVE
     Route: 048
  2. LABETALOL [Suspect]
     Indication: CARDIOMYOPATHY
     Route: 048
  3. LISINOPRIL [Suspect]
     Indication: DIABETIC NEPHROPATHY
     Route: 048

REACTIONS (1)
  - Renal failure acute [None]
